FAERS Safety Report 6535798-X (Version None)
Quarter: 2010Q1

REPORT INFORMATION
  Report Type: 
  Country: None (occurrence: None)
  Receive Date: 20100113
  Receipt Date: 20100105
  Transmission Date: 20100710
  Serious: Yes (Other)
  Sender: FDA-Public Use
  Company Number: US-AMGEN-QUU383948

PATIENT
  Sex: Female

DRUGS (2)
  1. ENBREL [Suspect]
     Indication: RHEUMATOID ARTHRITIS
     Route: 058
  2. ENBREL [Suspect]
     Indication: PSORIASIS

REACTIONS (11)
  - ANAEMIA [None]
  - ARTHRALGIA [None]
  - ASTHENIA [None]
  - DIARRHOEA [None]
  - LOWER RESPIRATORY TRACT INFECTION [None]
  - NASOPHARYNGITIS [None]
  - OEDEMA PERIPHERAL [None]
  - SKIN FISSURES [None]
  - SKIN HAEMORRHAGE [None]
  - WEIGHT DECREASED [None]
  - WEIGHT INCREASED [None]
